FAERS Safety Report 15476139 (Version 1)
Quarter: 2018Q4

REPORT INFORMATION
  Report Type: Spontaneous
  Country: US (occurrence: US)
  Receive Date: 20181009
  Receipt Date: 20181009
  Transmission Date: 20190205
  Serious: Yes (Other)
  Sender: FDA-Public Use
  Company Number: US-ROCHE-2193957

PATIENT
  Age: 72 Year
  Sex: Female
  Weight: 63.56 kg

DRUGS (6)
  1. OCREVUS [Suspect]
     Active Substance: OCRELIZUMAB
     Indication: MULTIPLE SCLEROSIS
     Dosage: ONGOING :UNKNOWN
     Route: 042
     Dates: start: 20180417
  2. LORAZEPAM. [Concomitant]
     Active Substance: LORAZEPAM
     Dosage: ONGOING: YES;AT BEDTIME
     Route: 065
  3. ADVIL [Concomitant]
     Active Substance: IBUPROFEN
     Dosage: ONGOING :UNKNOWN;AS NEEDED
     Route: 065
     Dates: start: 20180930
  4. ZOLOFT [Concomitant]
     Active Substance: SERTRALINE HYDROCHLORIDE
     Dosage: ONGOING: YES
     Route: 065
  5. OCREVUS [Suspect]
     Active Substance: OCRELIZUMAB
     Dosage: ONGOING :UNKNOWN
     Route: 042
     Dates: start: 20180403
  6. GABAPENTIN. [Concomitant]
     Active Substance: GABAPENTIN
     Dosage: ONGOING :YES;AT BEDTIME
     Route: 065

REACTIONS (3)
  - Multiple sclerosis [Unknown]
  - Musculoskeletal stiffness [Unknown]
  - Genital herpes [Unknown]

NARRATIVE: CASE EVENT DATE: 201805
